FAERS Safety Report 7061733-4 (Version None)
Quarter: 2010Q4

REPORT INFORMATION
  Report Type: 
  Country: None (occurrence: None)
  Receive Date: 20101026
  Receipt Date: 20101022
  Transmission Date: 20110411
  Serious: Yes (Hospitalization)
  Sender: FDA-Public Use
  Company Number: DE-ELI_LILLY_AND_COMPANY-DE201006003181

PATIENT
  Sex: Female
  Weight: 59 kg

DRUGS (16)
  1. PEMETREXED [Suspect]
     Indication: NON-SMALL CELL LUNG CANCER
     Dosage: 800 MG, 1 IN 3 WEEKS
     Route: 042
     Dates: start: 20100512
  2. CISPLATIN [Suspect]
     Indication: NON-SMALL CELL LUNG CANCER
     Dosage: 120 MG, 1 IN 3 WEEKS
     Route: 042
     Dates: start: 20100512
  3. TARGIN [Concomitant]
     Indication: PAIN
     Dates: start: 20100503
  4. SEVREDOL [Concomitant]
     Indication: PAIN
     Dates: start: 20100301
  5. ACC /00082801/ [Concomitant]
     Indication: CHRONIC OBSTRUCTIVE PULMONARY DISEASE
     Dosage: 600, UNK
     Dates: start: 20100503
  6. NEXIUM [Concomitant]
     Indication: PROPHYLAXIS
     Dates: start: 20100301
  7. AMITRIPTYLINE HCL [Concomitant]
     Indication: DEPRESSION
     Dates: start: 20100301
  8. IDEOS                              /00944201/ [Concomitant]
     Indication: PROPHYLAXIS
     Dates: start: 20100301
  9. IBUPROFEN TABLETS [Concomitant]
     Indication: PAIN
     Dates: start: 20080101
  10. PREDNISOLON [Concomitant]
     Indication: MUSCULOSKELETAL PAIN
     Dates: start: 20080101
  11. LORAZEPAM [Concomitant]
     Indication: DEPRESSION
     Dates: start: 20100301
  12. ZOLPIDEM [Concomitant]
     Indication: INSOMNIA
     Dates: start: 20100503
  13. MOVICOL /01749801/ [Concomitant]
     Indication: CONSTIPATION
     Dates: start: 20100504
  14. NOVALGIN /06276704/ [Concomitant]
     Indication: PAIN
     Dates: start: 20100301
  15. SPIRIVA [Concomitant]
     Indication: CHRONIC OBSTRUCTIVE PULMONARY DISEASE
     Dates: start: 20100503
  16. SYMBICORT [Concomitant]
     Indication: CHRONIC OBSTRUCTIVE PULMONARY DISEASE
     Dates: start: 20100503

REACTIONS (10)
  - BLOOD ALKALINE PHOSPHATASE INCREASED [None]
  - BLOOD GLUCOSE INCREASED [None]
  - BLOOD LACTATE DEHYDROGENASE INCREASED [None]
  - C-REACTIVE PROTEIN INCREASED [None]
  - DECREASED APPETITE [None]
  - FATIGUE [None]
  - GENERAL PHYSICAL HEALTH DETERIORATION [None]
  - HAEMOGLOBIN DECREASED [None]
  - PLATELET COUNT INCREASED [None]
  - PROTHROMBIN TIME SHORTENED [None]
